FAERS Safety Report 21505089 (Version 1)
Quarter: 2022Q4

REPORT INFORMATION
  Report Type: Spontaneous
  Country: US (occurrence: None)
  Receive Date: 20221025
  Receipt Date: 20221025
  Transmission Date: 20230113
  Serious: Yes (Other)
  Sender: FDA-Public Use
  Company Number: None

PATIENT
  Age: 57 Year
  Sex: Female

DRUGS (1)
  1. HUMIRA [Suspect]
     Active Substance: ADALIMUMAB
     Indication: Crohn^s disease
     Dosage: 40MG  EVERY 14 DAYS SUBCUTNEOUS?
     Route: 058
     Dates: start: 20160923

REACTIONS (3)
  - Abdominal symptom [None]
  - Gastrointestinal disorder [None]
  - Condition aggravated [None]

NARRATIVE: CASE EVENT DATE: 20221011
